FAERS Safety Report 7860144-9 (Version None)
Quarter: 2011Q4

REPORT INFORMATION
  Report Type: 
  Country: None (occurrence: None)
  Receive Date: 20111027
  Receipt Date: 20111019
  Transmission Date: 20120403
  Serious: Yes (Other)
  Sender: FDA-Public Use
  Company Number: US-VERTEX PHARMACEUTICALS INC.-AE-2011-002509

PATIENT
  Sex: Male
  Weight: 86.26 kg

DRUGS (5)
  1. RIBAVIRIN [Concomitant]
     Indication: HEPATITIS C
     Route: 048
     Dates: start: 20110904
  2. PEGASYS [Concomitant]
     Indication: HEPATITIS C
     Dates: start: 20110904
  3. INCIVEK [Suspect]
     Indication: HEPATITIS C
     Route: 048
     Dates: start: 20110904
  4. LYRICA [Concomitant]
  5. XANAX [Concomitant]

REACTIONS (2)
  - HEPATIC ENCEPHALOPATHY [None]
  - DECREASED APPETITE [None]
